FAERS Safety Report 9268311 (Version 1)
Quarter: 2013Q2

REPORT INFORMATION
  Report Type: Spontaneous
  Country: US (occurrence: US)
  Receive Date: 20130502
  Receipt Date: 20130502
  Transmission Date: 20140414
  Serious: Yes (Hospitalization)
  Sender: FDA-Public Use
  Company Number: US-ELI_LILLY_AND_COMPANY-US201304007479

PATIENT
  Age: 74 Year
  Sex: Female

DRUGS (5)
  1. FORTEO [Suspect]
     Indication: OSTEOPOROSIS
     Dosage: 20 UG, QD
     Dates: start: 20111111
  2. NORVASC [Concomitant]
  3. ULTRAM [Concomitant]
  4. MULTIVITAMIN [Concomitant]
  5. OMEGA 3 [Concomitant]

REACTIONS (2)
  - Intestinal perforation [Unknown]
  - Drug dose omission [Recovered/Resolved]
